FAERS Safety Report 5963337-0 (Version None)
Quarter: 2008Q4

REPORT INFORMATION
  Report Type: 
  Country: None (occurrence: None)
  Receive Date: 20081124
  Receipt Date: 20081118
  Transmission Date: 20090506
  Serious: Yes (Disabling)
  Sender: FDA-Public Use
  Company Number: A0757062A

PATIENT
  Age: 60 Year
  Sex: Female

DRUGS (7)
  1. PROPAFENONE HYDROCHLORIDE [Suspect]
     Indication: ATRIAL FIBRILLATION
     Dosage: 225MG TWICE PER DAY
     Route: 048
     Dates: start: 20081113
  2. NEXIUM [Concomitant]
  3. MULTI-VITAMIN [Concomitant]
  4. LYSINE [Concomitant]
  5. ACIDOPHILUS [Concomitant]
  6. CALCIUM [Concomitant]
  7. ASCORBIC ACID [Concomitant]

REACTIONS (8)
  - BURNING SENSATION [None]
  - CHEST DISCOMFORT [None]
  - DIZZINESS [None]
  - DYSPNOEA [None]
  - HOT FLUSH [None]
  - IMPAIRED WORK ABILITY [None]
  - NERVOUSNESS [None]
  - NIGHT SWEATS [None]
